FAERS Safety Report 9447943 (Version 1)
Quarter: 2013Q3

REPORT INFORMATION
  Report Type: Report from Study
  Country: MX (occurrence: MX)
  Receive Date: 20130808
  Receipt Date: 20130808
  Transmission Date: 20140515
  Serious: Yes (Other)
  Sender: FDA-Public Use
  Company Number: PHHY2013MX084827

PATIENT
  Age: 53 Year
  Sex: Female

DRUGS (4)
  1. TEGRETOL [Suspect]
     Indication: CEREBROVASCULAR ACCIDENT
     Dosage: UNK UKN, UNK
     Route: 048
     Dates: start: 200608, end: 2007
  2. TEGRETOL [Suspect]
     Indication: OFF LABEL USE
  3. ZUNUN [Concomitant]
     Indication: HEAD INJURY
     Dosage: 1 DF, DAILY
     Dates: start: 2012
  4. NOOTROPIL [Concomitant]
     Indication: HEAD INJURY
     Dosage: 1 DF, DAILY
     Dates: start: 2008

REACTIONS (4)
  - Metastases to thyroid [Unknown]
  - Papillary thyroid cancer [Unknown]
  - Emotional disorder [Unknown]
  - Mood altered [Unknown]
